FAERS Safety Report 7728132-0 (Version None)
Quarter: 2011Q3

REPORT INFORMATION
  Report Type: 
  Country: None (occurrence: None)
  Receive Date: 20110905
  Receipt Date: 20110825
  Transmission Date: 20111222
  Serious: Yes (Hospitalization)
  Sender: FDA-Public Use
  Company Number: AR-AMGEN-ARGSP2011038918

PATIENT
  Age: 61 Year
  Sex: Male
  Weight: 108 kg

DRUGS (3)
  1. ALLOPURINOL [Concomitant]
     Dosage: UNK
  2. ENBREL [Suspect]
     Indication: RHEUMATOID ARTHRITIS
     Dosage: 25 MG, WEEKLY
     Route: 058
     Dates: start: 20090306
  3. OMEPRAZOLE [Concomitant]
     Dosage: UNK

REACTIONS (2)
  - RENAL DISORDER [None]
  - URINARY TRACT INFECTION [None]
